FAERS Safety Report 20840309 (Version 8)
Quarter: 2024Q1

REPORT INFORMATION
  Report Type: Spontaneous
  Country: US (occurrence: US)
  Receive Date: 20220517
  Receipt Date: 20240311
  Transmission Date: 20240410
  Serious: No
  Sender: FDA-Public Use
  Company Number: US-PFIZER INC-202200661433

PATIENT
  Age: 65 Year
  Sex: Female

DRUGS (2)
  1. IBRANCE [Suspect]
     Active Substance: PALBOCICLIB
     Indication: Neoplasm malignant
     Dosage: 1 TAB X 21 DAYS, THEN OFF X 1 WEEK, REPEAT
     Dates: start: 20160705
  2. IBRANCE [Suspect]
     Active Substance: PALBOCICLIB
     Indication: Bone cancer
     Dosage: TAKE 1 TABLET (125 MG) DAILY WITH OR WITHOUT FOOD ON DAYS 1-21 EVERY 28 DAY CYCLE
     Route: 048
     Dates: start: 20240125

REACTIONS (2)
  - Therapeutic response unexpected [Unknown]
  - Abdominal distension [Unknown]
